FAERS Safety Report 12676596 (Version 2)
Quarter: 2016Q4

REPORT INFORMATION
  Report Type: Spontaneous
  Country: US (occurrence: US)
  Receive Date: 20160823
  Receipt Date: 20161019
  Transmission Date: 20170207
  Serious: No
  Sender: FDA-Public Use
  Company Number: US-PFIZER INC-2016396731

PATIENT
  Age: 55 Year
  Sex: Male

DRUGS (2)
  1. LYRICA [Suspect]
     Active Substance: PREGABALIN
     Indication: PAIN
     Dosage: 1000 MG, DAILY (500 MG CAPSULE TWO A DAY)
  2. LYRICA [Suspect]
     Active Substance: PREGABALIN
     Dosage: TOOK ABOUT A QUARTER DOSE
     Dates: end: 20160710

REACTIONS (3)
  - Overdose [Unknown]
  - Intentional product use issue [Unknown]
  - Withdrawal syndrome [Not Recovered/Not Resolved]
